FAERS Safety Report 6065548-5 (Version None)
Quarter: 2009Q1

REPORT INFORMATION
  Report Type: 
  Country: None (occurrence: None)
  Receive Date: 20090204
  Receipt Date: 20090130
  Transmission Date: 20090719
  Serious: Yes (Hospitalization)
  Sender: FDA-Public Use
  Company Number: FR-B.I. PHARMACEUTICALS,INC./RIDGEFIELD-2009-FF-00064FF

PATIENT
  Sex: Male

DRUGS (10)
  1. PERSANTINE [Suspect]
     Dosage: 225MG
     Route: 048
     Dates: end: 20090105
  2. IRBESARTAN [Concomitant]
  3. FUROSEMIDE [Concomitant]
  4. CERIS [Concomitant]
  5. PROSCAR [Concomitant]
  6. IXPRIM [Concomitant]
  7. OMEPRAZOLE [Concomitant]
  8. VERATRAN [Concomitant]
  9. STILNOX [Concomitant]
  10. DIFFU K [Concomitant]

REACTIONS (1)
  - SUBDURAL HAEMATOMA [None]
